FAERS Safety Report 18329417 (Version 1)
Quarter: 2020Q3

REPORT INFORMATION
  Report Type: Report from Study
  Country: CA (occurrence: CA)
  Receive Date: 20200930
  Receipt Date: 20200930
  Transmission Date: 20201103
  Serious: Yes (Death, Other)
  Sender: FDA-Public Use
  Company Number: CA-INCYTE CORPORATION-2020IN009512

PATIENT

DRUGS (1)
  1. JAKAVI [Suspect]
     Active Substance: RUXOLITINIB
     Indication: POLYCYTHAEMIA VERA
     Dosage: 10 MG
     Route: 048
     Dates: start: 20181016

REACTIONS (3)
  - Second primary malignancy [Unknown]
  - Death [Fatal]
  - Skin cancer [Unknown]

NARRATIVE: CASE EVENT DATE: 202002
